FAERS Safety Report 8237476-8 (Version None)
Quarter: 2012Q1

REPORT INFORMATION
  Report Type: 
  Country: None (occurrence: None)
  Receive Date: 20120327
  Receipt Date: 20120319
  Transmission Date: 20120608
  Serious: Yes (Other)
  Sender: FDA-Public Use
  Company Number: PHHY2012US024690

PATIENT

DRUGS (4)
  1. RIBAVIRIN [Suspect]
     Indication: HEPATITIS C
  2. INTERFERON ALFA-2B [Suspect]
     Indication: HEPATITIS C
  3. PEGINTERFERON ALFA-2A [Suspect]
     Indication: HEPATITIS C
  4. PEGINTERFERON ALFA-2A [Suspect]
     Indication: HEPATITIS C

REACTIONS (2)
  - NEURODERMATITIS [None]
  - SEBORRHOEIC DERMATITIS [None]
